FAERS Safety Report 16847274 (Version 1)
Quarter: 2019Q3

REPORT INFORMATION
  Report Type: Spontaneous
  Country: US (occurrence: US)
  Receive Date: 20190924
  Receipt Date: 20190924
  Transmission Date: 20191005
  Serious: Yes (Hospitalization, Other)
  Sender: FDA-Public Use
  Company Number: US-ABBVIE-19P-163-2937385-00

PATIENT
  Age: 40 Year
  Sex: Female

DRUGS (1)
  1. LEUPRORELINE ACETATE [Suspect]
     Active Substance: LEUPROLIDE ACETATE
     Indication: IN VITRO FERTILISATION
     Dosage: UNK
     Route: 065

REACTIONS (2)
  - Prosthetic cardiac valve thrombosis [Recovered/Resolved]
  - Pulmonary oedema [Recovered/Resolved]
